FAERS Safety Report 9304182 (Version 2)
Quarter: 2013Q2

REPORT INFORMATION
  Report Type: Spontaneous
  Country: DE (occurrence: DE)
  Receive Date: 20130522
  Receipt Date: 20130528
  Transmission Date: 20140414
  Serious: Yes (Other)
  Sender: FDA-Public Use
  Company Number: DE-PFIZER INC-2013151596

PATIENT
  Age: 38 Year
  Sex: Female
  Weight: 64 kg

DRUGS (6)
  1. VENLAFAXINE HCL [Suspect]
     Indication: BIPOLAR DISORDER
     Dosage: 75 MG/DAY
     Route: 048
     Dates: start: 2009
  2. QUILONORM RETARD [Suspect]
     Indication: BIPOLAR DISORDER
     Dosage: 1125 MG/DAY
     Route: 048
     Dates: start: 2009, end: 20120506
  3. QUILONORM RETARD [Suspect]
     Dosage: INCREASED TO 1350 MG/D
     Route: 048
     Dates: start: 20120507, end: 20120530
  4. QUILONORM RETARD [Suspect]
     Dosage: 1350 MG/DAY
     Route: 048
     Dates: start: 20120531
  5. SEROQUEL PROLONG [Suspect]
     Indication: BIPOLAR DISORDER
     Dosage: 200 MG/DAY
     Route: 048
     Dates: start: 2009
  6. FOLSAEURE RATIOPHARM [Concomitant]
     Indication: PROPHYLAXIS OF NEURAL TUBE DEFECT
     Dosage: 5 MG/DAY
     Route: 048
     Dates: start: 20111102, end: 20120727

REACTIONS (3)
  - Polyhydramnios [Recovered/Resolved]
  - Gestational diabetes [Recovered/Resolved]
  - Off label use [Unknown]
